FAERS Safety Report 6120120-3 (Version None)
Quarter: 2009Q1

REPORT INFORMATION
  Report Type: 
  Country: None (occurrence: None)
  Receive Date: 20090312
  Receipt Date: 20090227
  Transmission Date: 20090719
  Serious: Yes (Other)
  Sender: FDA-Public Use
  Company Number: B0563849A

PATIENT
  Sex: 0

DRUGS (2)
  1. MELPHALAN (FORMULATION UNKNOWN) (GENERIC) (MELPHALAN) [Suspect]
     Indication: MALIGNANT MELANOMA
  2. DACTINOMYCIN [Suspect]
     Indication: MALIGNANT MELANOMA

REACTIONS (6)
  - BLOOD CREATINE PHOSPHOKINASE INCREASED [None]
  - DRUG TOXICITY [None]
  - ERYTHEMA [None]
  - NAUSEA [None]
  - PAIN [None]
  - SWELLING [None]
